FAERS Safety Report 18006733 (Version 1)
Quarter: 2020Q3

REPORT INFORMATION
  Report Type: Spontaneous
  Country: US (occurrence: US)
  Receive Date: 20200709
  Receipt Date: 20200709
  Transmission Date: 20201103
  Serious: No
  Sender: FDA-Public Use
  Company Number: None

PATIENT

DRUGS (2)
  1. BUPROPION SR BUPR OPION HCL EXTENDED?RELEASE (SR) [Suspect]
     Active Substance: BUPROPION HYDROCHLORIDE
     Route: 048
  2. BUPROPION HCL EXTENDED RELEASE BUPROPION HCL EXTENDED RELEASE HCL [Suspect]
     Active Substance: BUPROPION HYDROCHLORIDE
     Route: 011

REACTIONS (1)
  - Product packaging confusion [None]
